FAERS Safety Report 23753615 (Version 5)
Quarter: 2024Q2

REPORT INFORMATION
  Report Type: Spontaneous
  Country: MX (occurrence: MX)
  Receive Date: 20240417
  Receipt Date: 20240606
  Transmission Date: 20240716
  Serious: Yes (Hospitalization, Other)
  Sender: FDA-Public Use
  Company Number: MX-NOVOPROD-1201892

PATIENT
  Age: 28 Year
  Sex: Female
  Weight: 57 kg

DRUGS (1)
  1. NOVORAPID [Suspect]
     Active Substance: INSULIN ASPART
     Indication: Product used for unknown indication
     Dosage: 5-7 IU, BASED ON CARBOHYDRATES CONSUMED.

REACTIONS (8)
  - Abdominal distension [Unknown]
  - Dyspnoea [Unknown]
  - Blood glucose increased [Unknown]
  - Device breakage [Unknown]
  - Device failure [Unknown]
  - Blood glucose increased [Unknown]
  - Injection site rash [Unknown]
  - Wrong technique in product usage process [Unknown]

NARRATIVE: CASE EVENT DATE: 20230101
